FAERS Safety Report 19671083 (Version 2)
Quarter: 2021Q3

REPORT INFORMATION
  Report Type: Report from Study
  Country: PE (occurrence: PE)
  Receive Date: 20210806
  Receipt Date: 20210908
  Transmission Date: 20211014
  Serious: Yes (Death, Hospitalization, Other)
  Sender: FDA-Public Use
  Company Number: PE-SEATTLE GENETICS-2021SGN03871

PATIENT
  Age: 64 Year
  Sex: Female

DRUGS (1)
  1. BRENTUXIMAB VEDOTIN [Suspect]
     Active Substance: BRENTUXIMAB VEDOTIN
     Indication: HODGKIN^S DISEASE
     Dosage: 90 MILLIGRAM, Q3WEEKS
     Route: 042
     Dates: start: 20200822

REACTIONS (4)
  - Klebsiella infection [Recovering/Resolving]
  - Pneumonia [Recovering/Resolving]
  - General physical health deterioration [Unknown]
  - Adverse event [Fatal]

NARRATIVE: CASE EVENT DATE: 202107
